FAERS Safety Report 7622452-6 (Version None)
Quarter: 2011Q3

REPORT INFORMATION
  Report Type: 
  Country: None (occurrence: None)
  Receive Date: 20110711
  Receipt Date: 20110629
  Transmission Date: 20111222
  Serious: Yes (Other)
  Sender: FDA-Public Use
  Company Number: 2011MA007869

PATIENT
  Sex: Female

DRUGS (5)
  1. ESCITALOPRAM [Concomitant]
  2. VALPROIC ACID [Concomitant]
  3. RAMIPRIL [Suspect]
     Dosage: PO
     Route: 048
  4. SEROQUEL [Suspect]
     Indication: SCHIZOAFFECTIVE DISORDER
     Dosage: 100 MG; QD; PO
     Route: 048
  5. SEROQUEL [Suspect]
     Dosage: 450 MG

REACTIONS (6)
  - DIARRHOEA [None]
  - DRUG INTOLERANCE [None]
  - ORTHOSTATIC HYPOTENSION [None]
  - DIZZINESS [None]
  - DIVERTICULITIS [None]
  - ANXIETY [None]
